FAERS Safety Report 4548374-5 (Version None)
Quarter: 2005Q1

REPORT INFORMATION
  Report Type: 
  Country: None (occurrence: None)
  Receive Date: 20050110
  Receipt Date: 20041112
  Transmission Date: 20050727
  Serious: Yes (Life-Threatening, Hospitalization)
  Sender: FDA-Public Use
  Company Number: DE-ROCHE-386165

PATIENT
  Age: 53 Year
  Sex: Male

DRUGS (11)
  1. CELLCEPT [Suspect]
     Route: 065
     Dates: start: 20040824
  2. SANDIMMUNE [Concomitant]
  3. DECORTIN H [Concomitant]
  4. FLOXAL [Concomitant]
     Route: 047
  5. DEXA [Concomitant]
  6. HEALON [Concomitant]
     Route: 047
  7. AZOPT [Concomitant]
     Route: 047
  8. KALINOR [Concomitant]
  9. AMOXICLAV [Concomitant]
  10. PANTOPRAZOL [Concomitant]
  11. CLONT [Concomitant]

REACTIONS (5)
  - CHEST X-RAY ABNORMAL [None]
  - EMBOLISM [None]
  - HELICOBACTER INFECTION [None]
  - PERFORATED ULCER [None]
  - PULMONARY EMBOLISM [None]
